FAERS Safety Report 7993541-1 (Version None)
Quarter: 2011Q4

REPORT INFORMATION
  Report Type: 
  Country: None (occurrence: None)
  Receive Date: 20111219
  Receipt Date: 20111209
  Transmission Date: 20120403
  Serious: Yes (Hospitalization, Other)
  Sender: FDA-Public Use
  Company Number: US-ASTRAZENECA-2011SE11615

PATIENT
  Age: 58 Year
  Sex: Female

DRUGS (6)
  1. SYMBICORT [Suspect]
     Dosage: 80/4.5 MCG DAILY
     Route: 055
  2. SYMBICORT [Suspect]
     Indication: CHRONIC OBSTRUCTIVE PULMONARY DISEASE
     Dosage: 160/4.5 MCG DAILY
     Route: 055
  3. SPIRIVA [Concomitant]
  4. SYMBICORT [Suspect]
     Dosage: 80/4.5 MCG DAILY
     Route: 055
  5. SYMBICORT [Suspect]
     Indication: ASTHMA
     Dosage: 160/4.5 MCG DAILY
     Route: 055
  6. STEROID [Suspect]
     Route: 065

REACTIONS (5)
  - INFLUENZA [None]
  - MYOPATHY [None]
  - DRUG DOSE OMISSION [None]
  - MUSCLE DISORDER [None]
  - PNEUMONIA BACTERIAL [None]
